FAERS Safety Report 15390240 (Version 1)
Quarter: 2018Q3

REPORT INFORMATION
  Report Type: Spontaneous
  Country: US (occurrence: US)
  Receive Date: 20180908
  Receipt Date: 20180908
  Transmission Date: 20181010
  Serious: No
  Sender: FDA-Public Use
  Company Number: None

PATIENT
  Age: 11 Year
  Sex: Male
  Weight: 31.5 kg

DRUGS (4)
  1. QVAR INHALER [Concomitant]
  2. ZINC. [Concomitant]
     Active Substance: ZINC
  3. QVAR REDIHALER [Suspect]
     Active Substance: BECLOMETHASONE DIPROPIONATE
     Indication: ASTHMA
     Dosage: ?          QUANTITY:2 DF DOSAGE FORM;?
     Route: 055
     Dates: start: 20170801
  4. SYMBICORT [Suspect]
     Active Substance: BUDESONIDE\FORMOTEROL FUMARATE DIHYDRATE
     Indication: ASTHMA
     Dosage: ?          QUANTITY:2 DF DOSAGE FORM;?
     Route: 055
     Dates: start: 20180621, end: 20180731

REACTIONS (3)
  - Pruritus [None]
  - Rash [None]
  - Dermatitis [None]

NARRATIVE: CASE EVENT DATE: 20180621
